FAERS Safety Report 10885201 (Version 1)
Quarter: 2015Q1

REPORT INFORMATION
  Report Type: Spontaneous
  Country: US (occurrence: US)
  Receive Date: 20150304
  Receipt Date: 20150304
  Transmission Date: 20150721
  Serious: Yes (Death)
  Sender: FDA-Public Use
  Company Number: US-BANPHARM-20153618

PATIENT
  Age: 69 Year
  Sex: Female

DRUGS (5)
  1. AMITRIPTYLINE [Suspect]
     Active Substance: AMITRIPTYLINE
  2. DIPHENHYDRAMINE UNKNOWN PRODUCT [Suspect]
     Active Substance: DIPHENHYDRAMINE
  3. CITALOPRAM [Suspect]
     Active Substance: CITALOPRAM HYDROBROMIDE
  4. MECLIZINE [Suspect]
     Active Substance: MECLIZINE\MECLIZINE HYDROCHLORIDE
  5. CODEINE [Suspect]
     Active Substance: CODEINE

REACTIONS (2)
  - Drug abuse [Fatal]
  - Exposure via ingestion [None]
